FAERS Safety Report 6317822-2 (Version None)
Quarter: 2009Q3

REPORT INFORMATION
  Report Type: 
  Country: None (occurrence: None)
  Receive Date: 20090821
  Receipt Date: 20090819
  Transmission Date: 20100115
  Serious: Yes (Hospitalization, Other)
  Sender: FDA-Public Use
  Company Number: US-RB-017086-09

PATIENT
  Age: 43 Year
  Sex: Female

DRUGS (8)
  1. SUBOXONE [Suspect]
     Indication: DRUG DEPENDENCE
     Route: 060
     Dates: start: 20090416
  2. SUBOXONE [Suspect]
     Route: 048
     Dates: start: 20090611, end: 20090611
  3. PROZAC [Concomitant]
     Indication: DEPRESSION
     Dosage: UNKNOWN DOSING INFORMATION
     Route: 065
  4. REQUIP [Concomitant]
     Indication: SLEEP DISORDER
     Dosage: UNKNOWN DOSING INFORMATION
     Route: 065
  5. REQUIP [Concomitant]
     Indication: RESTLESS LEGS SYNDROME
     Dosage: UNKNOWN DOSING INFORMATION
     Route: 065
  6. ZONEGRAN [Concomitant]
     Indication: CONVULSION
     Dosage: UNKNOWN DOSING INFORMATION
     Route: 065
  7. DEPAKOTE [Concomitant]
     Indication: CONVULSION
     Dosage: UNKNOWN DOSING INFORMATION
     Route: 065
  8. ATENOLOL [Concomitant]
     Indication: HYPERTENSION
     Dosage: UNKNOWN DOSING INFORMATION
     Route: 065

REACTIONS (10)
  - ANTIPHOSPHOLIPID SYNDROME [None]
  - DEPRESSION [None]
  - DISORIENTATION [None]
  - HAEMOPTYSIS [None]
  - HALLUCINATION [None]
  - HEADACHE [None]
  - OEDEMA PERIPHERAL [None]
  - PERICARDIAL EFFUSION [None]
  - PNEUMONIA [None]
  - PULMONARY MASS [None]
